FAERS Safety Report 5123194-1 (Version None)
Quarter: 2006Q4

REPORT INFORMATION
  Report Type: 
  Country: None (occurrence: None)
  Receive Date: 20061009
  Receipt Date: 20060807
  Transmission Date: 20070319
  Serious: Yes (Hospitalization)
  Sender: FDA-Public Use
  Company Number: PHHO2006JP12981

PATIENT
  Age: 73 Year
  Sex: Male

DRUGS (14)
  1. GLEEVEC [Suspect]
     Indication: GASTROINTESTINAL STROMAL TUMOUR
     Dosage: 400 MG, QD
     Route: 048
     Dates: start: 20051006, end: 20051017
  2. GLEEVEC [Suspect]
     Dosage: 300 MG, QD
     Route: 048
     Dates: start: 20051018
  3. PARIET [Concomitant]
  4. HALCION [Concomitant]
  5. HARNAL [Concomitant]
  6. EUGLUCON [Concomitant]
  7. HERBESSOR R [Concomitant]
  8. ISOSORBIDE MONONITRATE [Concomitant]
  9. EXCELASE [Concomitant]
  10. GENTACIN [Concomitant]
  11. ZOLPIDEM TARTRATE [Concomitant]
  12. STROCAIN [Concomitant]
  13. GANATON [Concomitant]
  14. HIRUDOID [Concomitant]

REACTIONS (5)
  - CONDITION AGGRAVATED [None]
  - PROSTATE CANCER [None]
  - SENSORY DISTURBANCE [None]
  - SURGERY [None]
  - TRANSURETHRAL PROSTATECTOMY [None]
